FAERS Safety Report 18972996 (Version 1)
Quarter: 2021Q1

REPORT INFORMATION
  Report Type: Spontaneous
  Country: US (occurrence: US)
  Receive Date: 20210304
  Receipt Date: 20210304
  Transmission Date: 20210420
  Serious: Yes (Hospitalization, Other)
  Sender: FDA-Public Use
  Company Number: None

PATIENT
  Age: 63 Year
  Sex: Male
  Weight: 91 kg

DRUGS (1)
  1. LABETALOL (LABETALOL 5MG/ML INJ,CARPUJECT,4ML) [Suspect]
     Active Substance: LABETALOL HYDROCHLORIDE
     Indication: HYPERTENSION
     Route: 042
     Dates: start: 20201204, end: 20201204

REACTIONS (8)
  - Unresponsive to stimuli [None]
  - Pulmonary embolism [None]
  - Syncope [None]
  - Blood pressure increased [None]
  - Hypotension [None]
  - Bradycardia [None]
  - Cardiac arrest [None]
  - Vascular dissection [None]

NARRATIVE: CASE EVENT DATE: 20201204
